FAERS Safety Report 4788026-X (Version None)
Quarter: 2005Q3

REPORT INFORMATION
  Report Type: 
  Country: None (occurrence: None)
  Receive Date: 20050914
  Receipt Date: 20050808
  Transmission Date: 20060218
  Serious: Yes (Other)
  Sender: FDA-Public Use
  Company Number: 413522

PATIENT

DRUGS (1)
  1. BONIVA [Suspect]

REACTIONS (1)
  - DIARRHOEA [None]
